FAERS Safety Report 7321375 (Version 3)
Quarter: 2013Q3

REPORT INFORMATION
  Report Type: Spontaneous
  Country: US (occurrence: US)
  Receive Date: 20100316
  Receipt Date: 20130816
  Transmission Date: 20140515
  Serious: Yes (Hospitalization, Other)
  Sender: FDA-Public Use
  Company Number: US-ROCHE-655713

PATIENT
  Age: 29 Year
  Sex: Male
  Weight: 86.2 kg

DRUGS (2)
  1. ACCUTANE [Suspect]
     Indication: ACNE
     Dosage: STRENGTH: 10 MG; 20 MG; 40 MG
     Route: 048
     Dates: start: 19981116, end: 19990411
  2. ACCUTANE [Suspect]
     Route: 048
     Dates: start: 19990816, end: 19990916

REACTIONS (9)
  - Crohn^s disease [Unknown]
  - Inflammatory bowel disease [Unknown]
  - Colitis ulcerative [Unknown]
  - Gastrooesophageal reflux disease [Not Recovered/Not Resolved]
  - Depression [Unknown]
  - Large intestine polyp [Unknown]
  - Dry eye [Recovered/Resolved]
  - Dry skin [Unknown]
  - Chapped lips [Unknown]
